FAERS Safety Report 21160786 (Version 1)
Quarter: 2022Q3

REPORT INFORMATION
  Report Type: Spontaneous
  Country: US (occurrence: US)
  Receive Date: 20220802
  Receipt Date: 20220802
  Transmission Date: 20221027
  Serious: No
  Sender: FDA-Public Use
  Company Number: US-PUMA BIOTECHNOLOGY, LTD.-2022-PUM-US001144

PATIENT

DRUGS (2)
  1. NERLYNX [Suspect]
     Active Substance: NERATINIB
     Indication: HER2 positive breast cancer
     Dosage: 3 TABLETS (120 MG), DAILY
     Route: 048
     Dates: start: 202206, end: 2022
  2. NERLYNX [Suspect]
     Active Substance: NERATINIB
     Dosage: 6 TABLETS (240 MG), DAILY
     Route: 048
     Dates: start: 2022

REACTIONS (6)
  - Tinnitus [Unknown]
  - Diarrhoea [Not Recovered/Not Resolved]
  - Nausea [Unknown]
  - Fatigue [Unknown]
  - Drug titration [Unknown]
  - Labelled drug-drug interaction medication error [Unknown]

NARRATIVE: CASE EVENT DATE: 20220101
